FAERS Safety Report 7265931-6 (Version None)
Quarter: 2011Q1

REPORT INFORMATION
  Report Type: 
  Country: None (occurrence: None)
  Receive Date: 20110131
  Receipt Date: 20101109
  Transmission Date: 20110831
  Serious: Yes (Hospitalization)
  Sender: FDA-Public Use
  Company Number: SE-AMGEN-SWECT2010004973

PATIENT
  Age: 56 Year
  Sex: Female

DRUGS (2)
  1. ETANERCEPT [Suspect]
     Dosage: 50 MG, QWK
     Route: 058
     Dates: start: 20041014, end: 20101001
  2. PREDNISOLONE [Concomitant]
     Dosage: UNK
     Dates: start: 20100607

REACTIONS (1)
  - OVARIAN CANCER [None]
